FAERS Safety Report 8013317-9 (Version None)
Quarter: 2011Q4

REPORT INFORMATION
  Report Type: 
  Country: None (occurrence: None)
  Receive Date: 20111229
  Receipt Date: 20111218
  Transmission Date: 20120403
  Serious: Yes (Other)
  Sender: FDA-Public Use
  Company Number: PHHY2011CN111078

PATIENT
  Age: 23 Year
  Sex: Male

DRUGS (3)
  1. PREDNISONE TAB [Concomitant]
     Indication: RENAL TRANSPLANT
     Dosage: UNK UKN, UNK
  2. MYCOPHENOLATE MOFETIL [Concomitant]
     Indication: RENAL TRANSPLANT
     Dosage: UNK UKN, UNK
  3. CYCLOSPORINE [Suspect]
     Indication: RENAL TRANSPLANT
     Dosage: UNK UKN, UNK

REACTIONS (6)
  - COMPLICATIONS OF TRANSPLANTED KIDNEY [None]
  - URINE OUTPUT DECREASED [None]
  - TOXICITY TO VARIOUS AGENTS [None]
  - NEPHROPATHY TOXIC [None]
  - RENAL TUBULAR NECROSIS [None]
  - BLOOD CREATININE INCREASED [None]
